FAERS Safety Report 7706187-7 (Version None)
Quarter: 2011Q3

REPORT INFORMATION
  Report Type: 
  Country: None (occurrence: None)
  Receive Date: 20110824
  Receipt Date: 20110720
  Transmission Date: 20111222
  Serious: No
  Sender: FDA-Public Use
  Company Number: US-BAYER-2011-064217

PATIENT
  Sex: Female
  Weight: 45.3 kg

DRUGS (5)
  1. CAMILA [Concomitant]
  2. RAMIPRIL [Concomitant]
  3. MULTI-VITAMIN [Concomitant]
  4. ALEVE (CAPLET) [Suspect]
     Indication: ANALGESIC THERAPY
  5. ALDACTONE [Concomitant]

REACTIONS (1)
  - ALOPECIA [None]
